FAERS Safety Report 4312996-7 (Version None)
Quarter: 2004Q1

REPORT INFORMATION
  Report Type: 
  Country: None (occurrence: None)
  Receive Date: 20040305
  Receipt Date: 20040305
  Transmission Date: 20041129
  Serious: Yes (Hospitalization, Disabling)
  Sender: FDA-Public Use
  Company Number: None

PATIENT
  Age: 39 Year
  Sex: Male
  Weight: 86.1834 kg

DRUGS (1)
  1. ADVIL COLD AND SINUS [Suspect]
     Dosage: TWO IN

REACTIONS (1)
  - CEREBROVASCULAR ACCIDENT [None]
